FAERS Safety Report 15428850 (Version 16)
Quarter: 2019Q1

REPORT INFORMATION
  Report Type: Report from Study
  Country: CO (occurrence: CO)
  Receive Date: 20180926
  Receipt Date: 20190122
  Transmission Date: 20190417
  Serious: Yes (Life-Threatening, Hospitalization)
  Sender: FDA-Public Use
  Company Number: PHHY2018CO102226

PATIENT
  Age: 37 Year
  Sex: Female
  Weight: 63 kg

DRUGS (5)
  1. ENTRESTO [Suspect]
     Active Substance: SACUBITRIL\VALSARTAN
     Indication: CARDIAC FAILURE
     Dosage: 50 MG, Q12H
     Route: 048
     Dates: start: 20180806
  2. CORYOL [Suspect]
     Active Substance: CARVEDILOL
     Indication: PRODUCT USED FOR UNKNOWN INDICATION
     Route: 065
  3. OMEPRAZOLE. [Concomitant]
     Active Substance: OMEPRAZOLE
     Indication: PRODUCT USED FOR UNKNOWN INDICATION
     Route: 065
  4. FUROSEMIDE. [Concomitant]
     Active Substance: FUROSEMIDE
     Indication: PRODUCT USED FOR UNKNOWN INDICATION
     Dosage: UNK UNK, Q12H
     Route: 065
  5. SPIRONOLACTONE. [Concomitant]
     Active Substance: SPIRONOLACTONE
     Indication: PRODUCT USED FOR UNKNOWN INDICATION
     Route: 065

REACTIONS (19)
  - Inflammation [Not Recovered/Not Resolved]
  - Disease recurrence [Unknown]
  - Abdominal pain upper [Unknown]
  - Lung disorder [Unknown]
  - Asphyxia [Unknown]
  - Choking [Unknown]
  - Vomiting [Unknown]
  - Hypotension [Unknown]
  - Liver disorder [Unknown]
  - Gastritis [Unknown]
  - Cardiac failure [Unknown]
  - Fluid retention [Unknown]
  - Cardiac dysfunction [Unknown]
  - Diarrhoea [Unknown]
  - Pain [Unknown]
  - Renal disorder [Unknown]
  - Cardiomegaly [Unknown]
  - Hepatitis [Unknown]
  - Dehydration [Unknown]

NARRATIVE: CASE EVENT DATE: 20180908
